FAERS Safety Report 9968685 (Version 1)
Quarter: 2014Q1

REPORT INFORMATION
  Report Type: Spontaneous
  Country: US (occurrence: US)
  Receive Date: 20140306
  Receipt Date: 20140306
  Transmission Date: 20141002
  Serious: No
  Sender: FDA-Public Use
  Company Number: US-ABBVIE-13P-163-1143347-00

PATIENT
  Age: 51 Year
  Sex: Male
  Weight: 102.15 kg

DRUGS (12)
  1. HUMIRA [Suspect]
     Indication: PSORIASIS
     Route: 058
     Dates: start: 201303
  2. GLYBURIDE [Concomitant]
     Indication: DIABETES MELLITUS
  3. ONGLYZA [Concomitant]
     Indication: DIABETES MELLITUS
  4. ATENOLOL [Concomitant]
     Indication: HYPERTENSION
  5. SIMVASTATIN [Concomitant]
     Indication: BLOOD CHOLESTEROL INCREASED
  6. AMLODIPINE [Concomitant]
     Indication: HYPERTENSION
  7. METFORMIN [Concomitant]
     Indication: DIABETES MELLITUS
  8. PAXIL [Concomitant]
     Indication: ANXIETY
  9. LYRICA [Concomitant]
     Indication: DIABETIC NEUROPATHY
  10. B 12 [Concomitant]
     Indication: PRODUCT USED FOR UNKNOWN INDICATION
  11. OXYCODONE [Concomitant]
     Indication: PRODUCT USED FOR UNKNOWN INDICATION
  12. LANTUS INSULIN [Concomitant]
     Indication: DIABETES MELLITUS

REACTIONS (3)
  - Wrong technique in drug usage process [Unknown]
  - Incorrect route of drug administration [Unknown]
  - Incorrect dose administered [Unknown]
